FAERS Safety Report 5371539-X (Version None)
Quarter: 2007Q2

REPORT INFORMATION
  Report Type: 
  Country: None (occurrence: None)
  Receive Date: 20070626
  Receipt Date: 20070618
  Transmission Date: 20071010
  Serious: Yes (Hospitalization, Other)
  Sender: FDA-Public Use
  Company Number: 2007SP009305

PATIENT
  Age: 50 Year
  Sex: Female
  Weight: 76.6579 kg

DRUGS (2)
  1. PEG-INTRON [Suspect]
     Indication: HEPATITIS C
     Dosage: 120 MCG; ; SC
     Route: 058
     Dates: start: 20070424, end: 20070504
  2. RIBAVIRIN [Suspect]
     Indication: HEPATITIS C
     Dosage: ; PO
     Route: 048
     Dates: start: 20070424, end: 20070504

REACTIONS (7)
  - BLOOD PRESSURE ABNORMAL [None]
  - CONSTIPATION [None]
  - HEADACHE [None]
  - INTRACRANIAL ANEURYSM [None]
  - NONSPECIFIC REACTION [None]
  - PAIN [None]
  - PYREXIA [None]
